FAERS Safety Report 5321972-7 (Version None)
Quarter: 2007Q2

REPORT INFORMATION
  Report Type: 
  Country: None (occurrence: None)
  Receive Date: 20070511
  Receipt Date: 20070503
  Transmission Date: 20071010
  Serious: Yes (Other)
  Sender: FDA-Public Use
  Company Number: ES-JNJFOC-20070406460

PATIENT
  Sex: Male

DRUGS (3)
  1. REMICADE [Suspect]
  2. REMICADE [Suspect]
     Indication: SPONDYLOARTHROPATHY
     Dosage: 5YEARS
  3. METHOTREXATE [Concomitant]

REACTIONS (1)
  - MESENTERIC PANNICULITIS [None]
